FAERS Safety Report 11176757 (Version 1)
Quarter: 2015Q2

REPORT INFORMATION
  Report Type: Report from Study
  Country: US (occurrence: US)
  Receive Date: 20150610
  Receipt Date: 20150610
  Transmission Date: 20150821
  Serious: Yes (Death, Other)
  Sender: FDA-Public Use
  Company Number: US-ROCHE-1561899

PATIENT

DRUGS (1)
  1. RITUXIMAB [Suspect]
     Active Substance: RITUXIMAB
     Indication: PROPHYLAXIS AGAINST TRANSPLANT REJECTION
     Dosage: MOST RECENT INFUSION RECEIVED ON: 13/DEC/2011
     Route: 065

REACTIONS (5)
  - Transplant rejection [Recovered/Resolved]
  - Cytomegalovirus viraemia [Recovered/Resolved]
  - Treatment noncompliance [Recovered/Resolved]
  - Atrioventricular block [Fatal]
  - Transplant rejection [Fatal]

NARRATIVE: CASE EVENT DATE: 20120127
